FAERS Safety Report 21664492 (Version 1)
Quarter: 2022Q4

REPORT INFORMATION
  Report Type: Report from Study
  Country: US (occurrence: US)
  Receive Date: 20221130
  Receipt Date: 20221130
  Transmission Date: 20230113
  Serious: No
  Sender: FDA-Public Use
  Company Number: US-ABBVIE-4182925

PATIENT
  Sex: Female

DRUGS (2)
  1. SKYRIZI [Suspect]
     Active Substance: RISANKIZUMAB-RZAA
     Indication: Psoriasis
     Dosage: WEEK 0, FORM STRENGTH: 150 MILLIGRAM
     Route: 058
     Dates: start: 20220903, end: 20220903
  2. SKYRIZI [Suspect]
     Active Substance: RISANKIZUMAB-RZAA
     Dosage: WEEK 4, EVERY 12 WEEKS THEREAFTER,?FORM STRENGTH: 150 MILLIGRAM
     Route: 058
     Dates: start: 20221001

REACTIONS (4)
  - Alopecia [Unknown]
  - Nasopharyngitis [Unknown]
  - Drug ineffective [Unknown]
  - Psoriasis [Unknown]
